FAERS Safety Report 17019414 (Version 1)
Quarter: 2019Q4

REPORT INFORMATION
  Report Type: Report from Study
  Country: None (occurrence: US)
  Receive Date: 20191112
  Receipt Date: 20191112
  Transmission Date: 20200122
  Serious: Yes (Other)
  Sender: FDA-Public Use
  Company Number: US-ABBVIE-19K-163-2994776-00

PATIENT
  Sex: Male

DRUGS (1)
  1. VENCLEXTA [Suspect]
     Active Substance: VENETOCLAX
     Indication: CHRONIC LYMPHOCYTIC LEUKAEMIA
     Route: 048
     Dates: start: 20190326

REACTIONS (14)
  - Blood immunoglobulin G increased [Unknown]
  - Systemic inflammatory response syndrome [Recovering/Resolving]
  - Arthropod bite [Recovering/Resolving]
  - Haemoglobin abnormal [Unknown]
  - Lymphocyte count decreased [Unknown]
  - Chronic sinusitis [Unknown]
  - Haematocrit abnormal [Unknown]
  - Natural killer cell activity abnormal [Unknown]
  - Pneumonia haemophilus [Unknown]
  - Natural killer cell activity increased [Unknown]
  - Hypogammaglobulinaemia [Unknown]
  - Chronic lymphocytic leukaemia [Unknown]
  - Lymphoproliferative disorder [Unknown]
  - Sinusitis [Recovering/Resolving]

NARRATIVE: CASE EVENT DATE: 2019
